FAERS Safety Report 4598889-9 (Version None)
Quarter: 2005Q1

REPORT INFORMATION
  Report Type: 
  Country: None (occurrence: None)
  Receive Date: 20050301
  Receipt Date: 20050215
  Transmission Date: 20050727
  Serious: Yes (Hospitalization)
  Sender: FDA-Public Use
  Company Number: A03200500479

PATIENT
  Sex: Female

DRUGS (1)
  1. ELOXATIN [Suspect]
     Dosage: INTRAVENOUS NOS
     Route: 042

REACTIONS (1)
  - HOSPITALISATION [None]
